FAERS Safety Report 12566403 (Version 1)
Quarter: 2016Q3

REPORT INFORMATION
  Report Type: Spontaneous
  Country: CR (occurrence: CR)
  Receive Date: 20160718
  Receipt Date: 20160718
  Transmission Date: 20161109
  Serious: Yes (Other)
  Sender: FDA-Public Use
  Company Number: CR-PFIZER INC-2016344970

PATIENT
  Age: 61 Year
  Sex: Male

DRUGS (1)
  1. EFFEXOR [Suspect]
     Active Substance: VENLAFAXINE HYDROCHLORIDE
     Indication: MAJOR DEPRESSION
     Dosage: 150 MG, UNK
     Dates: start: 201603

REACTIONS (2)
  - Diarrhoea [Unknown]
  - Occult blood positive [Unknown]

NARRATIVE: CASE EVENT DATE: 2016
